FAERS Safety Report 25621168 (Version 1)
Quarter: 2025Q3

REPORT INFORMATION
  Report Type: Spontaneous
  Country: EU (occurrence: EU)
  Receive Date: 20250730
  Receipt Date: 20250730
  Transmission Date: 20251020
  Serious: Yes (Hospitalization)
  Sender: JOHNSON AND JOHNSON
  Company Number: None

PATIENT
  Age: 42 Year
  Sex: Male
  Weight: 103 kg

DRUGS (2)
  1. SIMPONI [Suspect]
     Active Substance: GOLIMUMAB
     Indication: Rheumatoid arthritis
     Route: 058
     Dates: start: 20240528, end: 20250401
  2. METHOTREXATE [Concomitant]
     Active Substance: METHOTREXATE
     Indication: Vitamin supplementation

REACTIONS (3)
  - Mycobacterial infection [Recovered/Resolved with Sequelae]
  - Lung disorder [Recovered/Resolved with Sequelae]
  - Pulmonary cavitation [Recovered/Resolved with Sequelae]

NARRATIVE: CASE EVENT DATE: 20250401
